FAERS Safety Report 8116754-7 (Version None)
Quarter: 2012Q1

REPORT INFORMATION
  Report Type: 
  Country: None (occurrence: None)
  Receive Date: 20120206
  Receipt Date: 20120127
  Transmission Date: 20120608
  Serious: Yes (Hospitalization, Other)
  Sender: FDA-Public Use
  Company Number: PHEH2008US03987

PATIENT
  Sex: Female
  Weight: 78.005 kg

DRUGS (63)
  1. ZOMETA [Suspect]
     Indication: BREAST CANCER
  2. LITHIUM CARBONATE [Suspect]
     Indication: BIPOLAR I DISORDER
  3. PHENERGAN [Concomitant]
  4. ANASTROZOLE [Concomitant]
  5. MORPHINE [Concomitant]
  6. NALOXONE [Concomitant]
     Route: 042
  7. BIAXIN [Concomitant]
  8. AMITRIPTYLINE HCL [Concomitant]
  9. PERIDEX [Concomitant]
  10. HEPARIN SODIUM [Concomitant]
  11. PROTONIX [Concomitant]
     Route: 048
  12. LAMICTAL [Concomitant]
  13. PREVACID [Concomitant]
     Dosage: 30 MG, UNK
     Route: 048
     Dates: start: 20061201
  14. ROBAXIN [Concomitant]
     Dosage: 750 UKN, TID
  15. MIDAZOLAM [Concomitant]
     Dosage: 2.5 MG, BID
  16. TOPROL-XL [Concomitant]
  17. EFFEXOR [Concomitant]
     Dosage: 37.5 MG, TID
     Route: 048
  18. OXYCONTIN [Concomitant]
     Dosage: 20 MG, Q12H
  19. XANAX [Concomitant]
  20. PEPCID [Concomitant]
  21. VENLAFAXINE [Concomitant]
  22. AREDIA [Suspect]
     Dosage: 90 MG, UNK
  23. ONDANSETRON [Concomitant]
     Dosage: 4 MG, UNK
  24. COLACE [Concomitant]
     Dosage: 100 MG, BID
     Route: 048
  25. MAALOX                                  /USA/ [Concomitant]
  26. ACETAMINOPHEN [Concomitant]
     Route: 048
  27. ALBUTEROL [Concomitant]
  28. ONDANSETRON HCL [Concomitant]
  29. ANCEF [Concomitant]
     Route: 042
  30. NALBUPHINE [Concomitant]
  31. VICODIN [Concomitant]
  32. FENOFIBRATE [Concomitant]
  33. VANCOMYCIN [Concomitant]
  34. ARIPIPRAZOLE [Concomitant]
     Dosage: 10 MG, QD
  35. PERCOCET [Concomitant]
     Route: 048
  36. EPHEDRINE [Concomitant]
  37. DEMEROL [Concomitant]
     Dosage: 12.5 MG, BID
     Route: 042
  38. LEVAQUIN [Concomitant]
  39. ARIMIDEX [Concomitant]
  40. RESTORIL [Suspect]
     Dosage: 21 RESTORIL TABLETS IN A PERIOD OF THREE DAYS
  41. TAMOXIFEN CITRATE [Suspect]
  42. FENTANYL CITRATE [Concomitant]
  43. CEFAZOLIN [Concomitant]
     Dosage: 1 G, Q8H
  44. TORADOL [Concomitant]
  45. ATIVAN [Concomitant]
  46. DURAGESIC-100 [Concomitant]
     Dosage: 100 UG, Q72H
  47. ACIPHEX [Concomitant]
  48. KETOCONAZOLE [Concomitant]
  49. REPLIVA [Concomitant]
  50. LISINOPRIL [Concomitant]
  51. METOPROLOL [Concomitant]
  52. DILAUDID [Concomitant]
     Route: 042
  53. AMBIEN [Concomitant]
     Route: 048
  54. CARAFATE [Concomitant]
  55. AUGMENTIN '125' [Concomitant]
  56. LAMOTRIGINE [Concomitant]
  57. ABILIFY [Concomitant]
     Dosage: 15 MEQ/KG, QD
  58. CONCERTA [Concomitant]
     Dosage: 60 MG, QD
  59. ZOMETA [Suspect]
     Indication: METASTASES TO BONE
     Dosage: 4 MG, QMO
     Route: 042
     Dates: start: 19970101
  60. AMLODIPINE [Concomitant]
  61. METFORMIN HCL [Concomitant]
  62. METHYLPREDNISOLONE [Concomitant]
     Dosage: 4 MG, UNK
     Route: 048
     Dates: start: 20091001
  63. PENICILLIN V [Concomitant]

REACTIONS (100)
  - WEIGHT DECREASED [None]
  - DEPRESSED MOOD [None]
  - CHEST PAIN [None]
  - PELVIC PAIN [None]
  - HYPERTENSION [None]
  - PULMONARY FIBROSIS [None]
  - DRY MOUTH [None]
  - EXPOSED BONE IN JAW [None]
  - TOOTH ABSCESS [None]
  - OVERDOSE [None]
  - ALVEOLAR OSTEITIS [None]
  - HERPES ZOSTER [None]
  - BRONCHOSPASM [None]
  - CHRONIC SINUSITIS [None]
  - GINGIVAL INFECTION [None]
  - ANXIETY [None]
  - FACIAL BONES FRACTURE [None]
  - SKIN DISORDER [None]
  - HISTOPLASMOSIS [None]
  - METASTASES TO BONE [None]
  - DYSPHONIA [None]
  - MENOPAUSAL SYMPTOMS [None]
  - TREMOR [None]
  - ASTHMA [None]
  - ODYNOPHAGIA [None]
  - ACQUIRED DIAPHRAGMATIC EVENTRATION [None]
  - CELLULITIS [None]
  - GINGIVAL PAIN [None]
  - TOOTHACHE [None]
  - HYPERLIPIDAEMIA [None]
  - METASTASES TO SPINE [None]
  - ULCER [None]
  - NAUSEA [None]
  - PEPTIC ULCER [None]
  - BIPOLAR I DISORDER [None]
  - GASTRITIS [None]
  - PLEURAL EFFUSION [None]
  - UTERINE HAEMORRHAGE [None]
  - OSTEOMYELITIS [None]
  - HIATUS HERNIA [None]
  - IMPAIRED GASTRIC EMPTYING [None]
  - LOOSE TOOTH [None]
  - SINUS TACHYCARDIA [None]
  - ARTHROPATHY [None]
  - GASTROOESOPHAGEAL REFLUX DISEASE [None]
  - CONFUSIONAL STATE [None]
  - PLEURAL FIBROSIS [None]
  - OVARIAN CYST [None]
  - DERMATITIS [None]
  - HYPOPHAGIA [None]
  - GENERAL PHYSICAL HEALTH DETERIORATION [None]
  - PAIN IN EXTREMITY [None]
  - DYSTONIA [None]
  - HYPOKALAEMIA [None]
  - ABDOMINAL PAIN [None]
  - CONSTIPATION [None]
  - PNEUMOTHORAX [None]
  - APPENDICITIS [None]
  - TOXICITY TO VARIOUS AGENTS [None]
  - OESOPHAGITIS [None]
  - FALL [None]
  - PERIODONTITIS [None]
  - LUMBAR RADICULOPATHY [None]
  - ORAL HERPES [None]
  - LYMPHADENITIS [None]
  - PHARYNGITIS [None]
  - OSTEONECROSIS OF JAW [None]
  - PAIN [None]
  - BREAST CANCER RECURRENT [None]
  - DIAPHRAGMATIC HERNIA [None]
  - LUNG NEOPLASM [None]
  - URINARY TRACT INFECTION [None]
  - DYSPHAGIA [None]
  - SPLENIC LESION [None]
  - ESSENTIAL HYPERTENSION [None]
  - GINGIVITIS [None]
  - RHINITIS ALLERGIC [None]
  - HYPERCHOLESTEROLAEMIA [None]
  - EXOSTOSIS [None]
  - RECTAL HAEMORRHAGE [None]
  - DECREASED INTEREST [None]
  - BACK PAIN [None]
  - VOMITING [None]
  - DIARRHOEA [None]
  - INSOMNIA [None]
  - OSTEOARTHRITIS [None]
  - SNORING [None]
  - MENORRHAGIA [None]
  - HAEMORRHOIDS [None]
  - INTERVERTEBRAL DISC PROTRUSION [None]
  - RENAL FAILURE ACUTE [None]
  - INTERVERTEBRAL DISC DEGENERATION [None]
  - HOT FLUSH [None]
  - HEPATIC STEATOSIS [None]
  - TENDONITIS [None]
  - BONE PAIN [None]
  - ANAEMIA [None]
  - SPINAL OSTEOARTHRITIS [None]
  - OTITIS MEDIA ACUTE [None]
  - RESTLESS LEGS SYNDROME [None]
